FAERS Safety Report 7167154-8 (Version None)
Quarter: 2010Q4

REPORT INFORMATION
  Report Type: 
  Country: None (occurrence: None)
  Receive Date: 20101216
  Receipt Date: 20101207
  Transmission Date: 20110411
  Serious: Yes (Other)
  Sender: FDA-Public Use
  Company Number: US-SANOFI-AVENTIS-2010SA074775

PATIENT
  Age: 75 Year
  Sex: Female

DRUGS (1)
  1. PLAVIX [Suspect]
     Indication: THROMBOPHLEBITIS
     Route: 048
     Dates: end: 20101206

REACTIONS (2)
  - OFF LABEL USE [None]
  - THROMBOSIS [None]
